FAERS Safety Report 14599350 (Version 1)
Quarter: 2018Q1

REPORT INFORMATION
  Report Type: Report from Study
  Country: CH (occurrence: CH)
  Receive Date: 20180305
  Receipt Date: 20180305
  Transmission Date: 20180509
  Serious: Yes (Death, Other)
  Sender: FDA-Public Use
  Company Number: CH-TEVA-2018-CH-863991

PATIENT
  Age: 78 Year
  Sex: Male

DRUGS (7)
  1. ESOMEPRAZOLE [Concomitant]
     Active Substance: ESOMEPRAZOLE
     Dosage: 40 MILLIGRAM DAILY; 40MG/DAY
  2. RIVAROXABAN [Suspect]
     Active Substance: RIVAROXABAN
     Dosage: 20MG/DAY, THEN CHANGED TO 15MG/DAY
     Route: 065
  3. CLOPIDOGREL [Suspect]
     Active Substance: CLOPIDOGREL BISULFATE
     Dosage: 75 MILLIGRAM DAILY; 75MG/DAY
     Route: 065
  4. ASPIRIN. [Suspect]
     Active Substance: ASPIRIN
     Indication: ANTIPLATELET THERAPY
     Route: 048
  5. RIVAROXABAN [Suspect]
     Active Substance: RIVAROXABAN
     Dosage: 15 MILLIGRAM DAILY; 15MG/DAY
     Route: 065
  6. BIOFREEDOM [Concomitant]
     Dosage: DRUG-ELUTING STENT
     Route: 050
  7. CLOPIDOGREL [Suspect]
     Active Substance: CLOPIDOGREL BISULFATE
     Indication: ANTIPLATELET THERAPY
     Dosage: LOADING DOSE: 600MG, FOLLOWED BY 75 MG/DAY
     Route: 065

REACTIONS (9)
  - Subdural haematoma [Fatal]
  - Injury [Not Recovered/Not Resolved]
  - Syncope [Unknown]
  - Head injury [Not Recovered/Not Resolved]
  - Subarachnoid haematoma [Fatal]
  - Gastrointestinal haemorrhage [Unknown]
  - Haematuria [Unknown]
  - Cerebral haemorrhage [Fatal]
  - Fall [Unknown]
